FAERS Safety Report 6497114-1 (Version None)
Quarter: 2009Q4

REPORT INFORMATION
  Report Type: 
  Country: None (occurrence: None)
  Receive Date: 20091215
  Receipt Date: 20090320
  Transmission Date: 20100525
  Serious: No
  Sender: FDA-Public Use
  Company Number: A0774589A

PATIENT
  Age: 50 Year
  Sex: Male

DRUGS (8)
  1. AVODART [Suspect]
     Dosage: .5MG PER DAY
     Route: 048
     Dates: start: 20090219
  2. ANDROGEL [Concomitant]
  3. SIMVASTATIN [Concomitant]
  4. AMBIEN [Concomitant]
  5. HYDROCODONE [Concomitant]
  6. HYDROCHLOROTHIAZIDE [Concomitant]
  7. LISINOPRIL AND HYDROCHLOROTHIAZIDE [Concomitant]
  8. BUSPAR [Concomitant]

REACTIONS (2)
  - BLOOD TESTOSTERONE DECREASED [None]
  - DRUG INTERACTION [None]
